FAERS Safety Report 17672510 (Version 1)
Quarter: 2020Q2

REPORT INFORMATION
  Report Type: Spontaneous
  Country: CO (occurrence: CO)
  Receive Date: 20200415
  Receipt Date: 20200415
  Transmission Date: 20200713
  Serious: Yes (Hospitalization)
  Sender: FDA-Public Use
  Company Number: CO-BIOMARINAP-CO-2020-129166

PATIENT
  Age: 11 Year
  Sex: Female

DRUGS (1)
  1. NAGLAZYME [Suspect]
     Active Substance: GALSULFASE
     Indication: MUCOPOLYSACCHARIDOSIS VI
     Dosage: 15 MILLIGRAM
     Route: 042
     Dates: start: 20170322

REACTIONS (4)
  - Visual impairment [Unknown]
  - Umbilical hernia [Recovering/Resolving]
  - Hypoacusis [Unknown]
  - Mobility decreased [Unknown]
